FAERS Safety Report 6806533-2 (Version None)
Quarter: 2010Q2

REPORT INFORMATION
  Report Type: 
  Country: None (occurrence: None)
  Receive Date: 20100629
  Receipt Date: 20080304
  Transmission Date: 20101027
  Serious: Yes (Death, Other)
  Sender: FDA-Public Use
  Company Number: US-PFIZER INC-2008020291

PATIENT
  Sex: Male

DRUGS (2)
  1. VIAGRA [Suspect]
     Route: 048
     Dates: start: 20070209
  2. MICARDIS [Suspect]
     Route: 048
     Dates: start: 20070101

REACTIONS (2)
  - CHEST PAIN [None]
  - SUDDEN CARDIAC DEATH [None]
